FAERS Safety Report 13457432 (Version 3)
Quarter: 2017Q3

REPORT INFORMATION
  Report Type: Spontaneous
  Country: US (occurrence: US)
  Receive Date: 20170419
  Receipt Date: 20170717
  Transmission Date: 20171127
  Serious: No
  Sender: FDA-Public Use
  Company Number: US-PFIZER INC-2017165613

PATIENT
  Age: 86 Year
  Sex: Female

DRUGS (1)
  1. IBRANCE [Suspect]
     Active Substance: PALBOCICLIB
     Indication: BREAST CANCER FEMALE
     Dosage: 100 MG, CYCLIC (FOR THREE WEEKS/21 DAYS)
     Dates: start: 2017

REACTIONS (3)
  - Fatigue [Recovered/Resolved]
  - Epistaxis [Recovered/Resolved]
  - Swelling [Recovered/Resolved]
